FAERS Safety Report 11818861 (Version 5)
Quarter: 2022Q3

REPORT INFORMATION
  Report Type: Spontaneous
  Country: US (occurrence: US)
  Receive Date: 20151210
  Receipt Date: 20220830
  Transmission Date: 20221027
  Serious: Yes (Other)
  Sender: FDA-Public Use
  Company Number: US-JNJFOC-20151100758

PATIENT
  Age: 9 Year
  Sex: Male

DRUGS (8)
  1. RISPERDAL [Suspect]
     Active Substance: RISPERIDONE
     Indication: Attention deficit hyperactivity disorder
     Route: 048
     Dates: start: 20050131, end: 200504
  2. RISPERDAL [Suspect]
     Active Substance: RISPERIDONE
     Indication: Autism spectrum disorder
     Route: 048
     Dates: end: 200505
  3. RISPERDAL [Suspect]
     Active Substance: RISPERIDONE
     Indication: Oppositional defiant disorder
     Route: 048
     Dates: end: 2013
  4. RISPERDAL [Suspect]
     Active Substance: RISPERIDONE
     Indication: Anxiety
     Route: 048
  5. INVEGA [Suspect]
     Active Substance: PALIPERIDONE
     Indication: Oppositional defiant disorder
     Route: 048
     Dates: start: 20050131
  6. INVEGA [Suspect]
     Active Substance: PALIPERIDONE
     Indication: Attention deficit hyperactivity disorder
     Dosage: 1.5 MG TO 6 MG
     Route: 048
     Dates: start: 200702, end: 201310
  7. INVEGA [Suspect]
     Active Substance: PALIPERIDONE
     Indication: Anxiety
     Route: 048
     Dates: end: 2013
  8. INVEGA [Suspect]
     Active Substance: PALIPERIDONE
     Indication: Autism spectrum disorder

REACTIONS (9)
  - Gynaecomastia [Unknown]
  - Hyperprolactinaemia [Unknown]
  - Hyperglycaemia [Unknown]
  - Abnormal weight gain [Unknown]
  - Somnolence [Unknown]
  - Fatigue [Unknown]
  - Emotional disorder [Unknown]
  - Product use in unapproved indication [Unknown]
  - Off label use [Unknown]

NARRATIVE: CASE EVENT DATE: 20050131
